FAERS Safety Report 8157215 (Version 2)
Quarter: 2014Q1

REPORT INFORMATION
  Report Type: Spontaneous
  Country: US (occurrence: US)
  Receive Date: 20110927
  Receipt Date: 20140313
  Transmission Date: 20141002
  Serious: Yes (Other)
  Sender: FDA-Public Use
  Company Number: US-RANBAXY-2011US-48381

PATIENT
  Age: 9 Year
  Sex: Female

DRUGS (5)
  1. FLUCONAZOLE [Suspect]
     Indication: VULVOVAGINAL CANDIDIASIS
     Dosage: UNK
     Route: 048
  2. FLUTICASONE [Interacting]
     Indication: ASTHMA
     Dosage: 110 MCG/ACTUATION, 2 PUFFS TWICE DAILY VIA SPACER
     Route: 055
     Dates: start: 20090602, end: 20090630
  3. FLUTICASONE [Interacting]
     Indication: ASTHMA
     Dosage: 220 MCG, BID
     Route: 055
     Dates: start: 20090630, end: 20090925
  4. PREDNISONE [Concomitant]
     Indication: PRODUCT USED FOR UNKNOWN INDICATION
     Dosage: 1 MG, BID
     Route: 048
  5. PREDNISONE [Concomitant]
     Indication: PRODUCT USED FOR UNKNOWN INDICATION
     Route: 048

REACTIONS (5)
  - Adrenal insufficiency [Recovering/Resolving]
  - Cushing^s syndrome [Unknown]
  - Cystic fibrosis related diabetes [Recovering/Resolving]
  - Drug interaction [Recovering/Resolving]
  - Vulvovaginal candidiasis [Unknown]
